FAERS Safety Report 8525325 (Version 2)
Quarter: 2013Q1

REPORT INFORMATION
  Report Type: Spontaneous
  Country: US (occurrence: None)
  Receive Date: 20120412
  Receipt Date: 20130304
  Transmission Date: 20140127
  Serious: Yes (Other)
  Sender: FDA-Public Use
  Company Number: ACO_29925_2012

PATIENT
  Age: 31 Year
  Sex: Male

DRUGS (23)
  1. AMPYRA [Suspect]
     Indication: PRODUCT USED FOR UNKNOWN INDICATION
     Route: 048
  2. MARINOL [Concomitant]
  3. LORAZEPAM (LORAZEPAM) [Concomitant]
  4. SUMATRIPTAN (SUMATRIPTAN) [Concomitant]
  5. CITALOPRAM [Concomitant]
  6. SENNA [Concomitant]
  7. TOPIRAMATE (TOPIRAMATE) [Concomitant]
  8. OXYBUTYNIN CHLORIDE (OXYBUTYNIN HYDROCHLORIDE) [Concomitant]
  9. ZOFRAN (ONDANSETRON HYDROCHLORIDE) [Concomitant]
  10. OMEPRAZOLE (OMEPRAZOLE) [Concomitant]
  11. RISPERDAL (RISPERIDONE) [Concomitant]
  12. MIRALAX [Concomitant]
  13. OXYCODONE (OXYCODONE HYDROCHLORIDE) [Concomitant]
  14. BACTRIM [Concomitant]
  15. BACLOFEN (BACLOFEN) [Concomitant]
  16. SANCTURA (TROSPIUM CHLORIDE) [Concomitant]
  17. MAGNESIUM (MAGNESIUM) [Concomitant]
  18. MULTIVITAMIN (VITAMINS NOS) [Concomitant]
  19. LYRICA (PREGABALIN) [Concomitant]
  20. BUDEPRION (BUPROPION HYDROCHLORIDE) [Concomitant]
  21. EFFEXOR (VENLAFAXINE HYDROCHLORIDE) [Concomitant]
  22. CRANBERRY (CRANBERRY) [Concomitant]
  23. METHENAMINE HIPPURATE (METHENAMINE HIPPURATE) [Concomitant]

REACTIONS (3)
  - Neoplasm malignant [None]
  - Nephrectomy [None]
  - Epididymitis [None]
